FAERS Safety Report 7652317-5 (Version None)
Quarter: 2011Q3

REPORT INFORMATION
  Report Type: 
  Country: None (occurrence: None)
  Receive Date: 20110722
  Receipt Date: 20110520
  Transmission Date: 20111222
  Serious: Yes (Hospitalization)
  Sender: FDA-Public Use
  Company Number: UTC-007349

PATIENT
  Age: 49 Year
  Sex: Female

DRUGS (4)
  1. DIURETICS (DIURETICS) [Concomitant]
  2. REVATIO [Concomitant]
  3. REMODULIN [Suspect]
     Indication: CARDIAC DISORDER
     Dosage: 28.8 UG/KG (0.02 UG/KG, 1 IN 1 MIN), INTRAVENOUS
     Route: 042
     Dates: start: 20101014
  4. REMODULIN [Suspect]
     Indication: RESPIRATORY DISORDER
     Dosage: 28.8 UG/KG (0.02 UG/KG, 1 IN 1 MIN), INTRAVENOUS
     Route: 042
     Dates: start: 20101014

REACTIONS (1)
  - SEPSIS [None]
